FAERS Safety Report 23985165 (Version 1)
Quarter: 2024Q2

REPORT INFORMATION
  Report Type: Spontaneous
  Country: DE (occurrence: DE)
  Receive Date: 20240618
  Receipt Date: 20240618
  Transmission Date: 20240716
  Serious: Yes (Other)
  Sender: FDA-Public Use
  Company Number: DE-SUN PHARMACEUTICAL INDUSTRIES LTD-2024RR-451166

PATIENT
  Age: 34 Year
  Sex: Female

DRUGS (6)
  1. BOSENTAN [Suspect]
     Active Substance: BOSENTAN
     Indication: Pulmonary arterial hypertension
     Dosage: UNK
     Route: 065
     Dates: start: 2005
  2. BOSENTAN [Suspect]
     Active Substance: BOSENTAN
     Dosage: COMBINATION THERAPY WITH TADALAFIL AND BOSENTAN
     Route: 065
     Dates: start: 2015
  3. TADALAFIL [Suspect]
     Active Substance: TADALAFIL
     Indication: Pulmonary arterial hypertension
     Dosage: UNK
     Route: 065
     Dates: start: 2005
  4. TADALAFIL [Suspect]
     Active Substance: TADALAFIL
     Dosage: COMBINATION THERAPY WITH TADALAFIL AND BOSENTAN
     Dates: start: 2015
  5. SILDENAFIL [Suspect]
     Active Substance: SILDENAFIL
     Indication: Pulmonary arterial hypertension
     Dosage: UNK
     Route: 065
  6. METHOTREXATE [Suspect]
     Active Substance: METHOTREXATE
     Indication: Product used for unknown indication
     Dosage: UNK
     Route: 065

REACTIONS (5)
  - Condition aggravated [Unknown]
  - Adverse drug reaction [Unknown]
  - Lung disorder [Unknown]
  - Autoimmune enteropathy [Unknown]
  - Gastrointestinal disorder [Unknown]

NARRATIVE: CASE EVENT DATE: 20050101
